FAERS Safety Report 4659583-9 (Version None)
Quarter: 2005Q2

REPORT INFORMATION
  Report Type: 
  Country: None (occurrence: None)
  Receive Date: 20050412
  Receipt Date: 20050106
  Transmission Date: 20051028
  Serious: Yes (Hospitalization)
  Sender: FDA-Public Use
  Company Number: 2005S1000003

PATIENT
  Age: 56 Year
  Sex: Male

DRUGS (5)
  1. CUBICIN [Suspect]
     Indication: POSTOPERATIVE INFECTION
     Dosage: 6 MG/KG; QD; IV
     Route: 042
     Dates: start: 20041201, end: 20050105
  2. ATORVASTATIN [Concomitant]
  3. RIFAMPIN [Concomitant]
  4. TOPROL-XL [Concomitant]
  5. IRON SUPPLEMENT [Concomitant]

REACTIONS (3)
  - ABDOMINAL PAIN [None]
  - CHEST PAIN [None]
  - LIVER FUNCTION TEST ABNORMAL [None]
